FAERS Safety Report 6228375-1 (Version None)
Quarter: 2009Q2

REPORT INFORMATION
  Report Type: 
  Country: None (occurrence: None)
  Receive Date: 20090612
  Receipt Date: 20090604
  Transmission Date: 20091009
  Serious: Yes (Hospitalization, Other)
  Sender: FDA-Public Use
  Company Number: US-ELI_LILLY_AND_COMPANY-US200906001232

PATIENT
  Sex: Female

DRUGS (2)
  1. HUMALOG MIX 75/25 [Suspect]
     Indication: TYPE 2 DIABETES MELLITUS
     Dosage: 50 U, 4/D
     Dates: start: 19850101
  2. PLAVIX [Concomitant]
     Indication: CARDIAC DISORDER

REACTIONS (10)
  - CARDIAC DISORDER [None]
  - CHEST PAIN [None]
  - CRANIAL NERVE PARALYSIS [None]
  - DIABETIC RETINOPATHY [None]
  - INTENTIONAL DRUG MISUSE [None]
  - LIMB INJURY [None]
  - OCULAR HYPERTENSION [None]
  - POOR QUALITY DRUG ADMINISTERED [None]
  - THROMBOSIS [None]
  - TRANSIENT ISCHAEMIC ATTACK [None]
